FAERS Safety Report 4309045-3 (Version None)
Quarter: 2004Q1

REPORT INFORMATION
  Report Type: 
  Country: None (occurrence: None)
  Receive Date: 20040227
  Receipt Date: 20040219
  Transmission Date: 20041129
  Serious: Yes (Life-Threatening, Hospitalization)
  Sender: FDA-Public Use
  Company Number: 2004200081FR

PATIENT
  Age: 14 Year
  Sex: Male

DRUGS (5)
  1. GENOTROPIN [Suspect]
     Indication: HYPOPITUITARISM
     Dosage: SEE IMAGE
     Route: 058
     Dates: start: 19951030, end: 20040107
  2. GENOTROPIN [Suspect]
     Indication: HYPOPITUITARISM
     Dosage: SEE IMAGE
     Route: 058
     Dates: start: 20040215
  3. HYDROCORTISONE [Suspect]
     Dosage: 17.5 MG, QD
     Dates: start: 20010403
  4. LEVOTHYROXINE SODIUM [Suspect]
     Dosage: 75 UG, QD
     Dates: start: 19950124
  5. MINIRIN (DESMOPRESSIN ACETATE) [Suspect]
     Dosage: 0.5 MG, QD
     Dates: start: 19990329

REACTIONS (2)
  - CRANIOPHARYNGIOMA [None]
  - NEOPLASM RECURRENCE [None]
